FAERS Safety Report 4750569-2 (Version None)
Quarter: 2005Q3

REPORT INFORMATION
  Report Type: 
  Country: None (occurrence: None)
  Receive Date: 20050823
  Receipt Date: 20050516
  Transmission Date: 20060218
  Serious: Yes (Other)
  Sender: FDA-Public Use
  Company Number: US-MERCK-0505USA01936

PATIENT
  Age: 49 Year
  Sex: Male
  Weight: 73 kg

DRUGS (7)
  1. PRINZIDE [Suspect]
     Route: 048
     Dates: start: 19990101, end: 20041214
  2. PRINZIDE [Suspect]
     Route: 048
     Dates: start: 20050118, end: 20050123
  3. SINGULAIR [Concomitant]
     Route: 048
  4. POTASSIUM (UNSPECIFIED) [Concomitant]
     Route: 065
  5. FLOVENT [Concomitant]
     Route: 055
  6. ALLEGRA [Concomitant]
     Route: 065
  7. PROVENTIL [Concomitant]
     Route: 055

REACTIONS (7)
  - BRONCHITIS [None]
  - BRONCHOSPASM [None]
  - HERPES SIMPLEX [None]
  - INFLUENZA [None]
  - LARYNGEAL OEDEMA [None]
  - OBSTRUCTIVE AIRWAYS DISORDER [None]
  - RASH [None]
